FAERS Safety Report 5071574-5 (Version None)
Quarter: 2006Q3

REPORT INFORMATION
  Report Type: 
  Country: None (occurrence: None)
  Receive Date: 20060803
  Receipt Date: 20060803
  Transmission Date: 20061208
  Serious: Yes (Hospitalization)
  Sender: FDA-Public Use
  Company Number: None

PATIENT
  Age: 67 Year
  Sex: Male
  Weight: 81.1939 kg

DRUGS (1)
  1. CLINDAMYCIN [Suspect]
     Indication: CARDIAC PACEMAKER INSERTION
     Dosage: 600 MG QID PO
     Route: 048
     Dates: start: 20060617, end: 20060621

REACTIONS (5)
  - ASTHENIA [None]
  - CLOSTRIDIAL INFECTION [None]
  - DECREASED APPETITE [None]
  - DIARRHOEA [None]
  - WEIGHT DECREASED [None]
